FAERS Safety Report 7042277-2 (Version None)
Quarter: 2010Q4

REPORT INFORMATION
  Report Type: 
  Country: None (occurrence: None)
  Receive Date: 20101013
  Receipt Date: 20100428
  Transmission Date: 20110411
  Serious: No
  Sender: FDA-Public Use
  Company Number: US-ASTRAZENECA-2010SE19155

PATIENT
  Sex: Female

DRUGS (5)
  1. SYMBICORT [Suspect]
     Indication: CHRONIC OBSTRUCTIVE PULMONARY DISEASE
     Route: 055
  2. SYMBICORT [Suspect]
     Route: 055
     Dates: start: 20100428
  3. CELEXA [Concomitant]
  4. ATIVAN [Concomitant]
  5. PROAIR HFA [Concomitant]

REACTIONS (2)
  - FEELING ABNORMAL [None]
  - NERVOUSNESS [None]
